FAERS Safety Report 6663605-3 (Version None)
Quarter: 2010Q1

REPORT INFORMATION
  Report Type: 
  Country: None (occurrence: None)
  Receive Date: 20100331
  Receipt Date: 20100331
  Transmission Date: 20100710
  Serious: Yes (Hospitalization)
  Sender: FDA-Public Use
  Company Number: None

PATIENT
  Age: 46 Year
  Sex: Female
  Weight: 126.3 kg

DRUGS (2)
  1. CLOFARABINE 20MG/20 ML [Suspect]
     Indication: ACUTE MYELOID LEUKAEMIA
     Dosage: 10 MG/M2 ONCE DAILY D1-5 IV DRIP
     Route: 041
     Dates: start: 20100223, end: 20100227
  2. GEMTUZUMAB OZOGAMICIN 5MG [Suspect]
     Indication: ACUTE MYELOID LEUKAEMIA
     Dosage: 3 MG/M2 ONCE DAYS 1,4,7 IV DRIP
     Route: 041
     Dates: start: 20100223, end: 20100301

REACTIONS (9)
  - CHOLECYSTITIS ACUTE [None]
  - DISEASE PROGRESSION [None]
  - DYSPNOEA [None]
  - FUNGAL INFECTION [None]
  - INFECTION [None]
  - MENTAL STATUS CHANGES [None]
  - PANCYTOPENIA [None]
  - RENAL FAILURE ACUTE [None]
  - SEPSIS [None]
